FAERS Safety Report 24196916 (Version 1)
Quarter: 2024Q3

REPORT INFORMATION
  Report Type: Spontaneous
  Country: US (occurrence: US)
  Receive Date: 20240810
  Receipt Date: 20240810
  Transmission Date: 20241016
  Serious: No
  Sender: MERCK
  Company Number: US-009507513-2408USA000372

PATIENT
  Age: 6 Year
  Sex: Female

DRUGS (8)
  1. PRIMAXIN IV [Interacting]
     Active Substance: CILASTATIN SODIUM\IMIPENEM
     Indication: Mycobacterium abscessus infection
     Dosage: UNK
     Route: 042
     Dates: start: 202211, end: 202301
  2. PRIMAXIN IV [Interacting]
     Active Substance: CILASTATIN SODIUM\IMIPENEM
     Indication: Pneumonia bacterial
  3. CEFDINIR [Interacting]
     Active Substance: CEFDINIR
     Indication: Mycobacterium abscessus infection
     Dosage: UNK
     Route: 048
     Dates: start: 202211, end: 202301
  4. CEFDINIR [Interacting]
     Active Substance: CEFDINIR
     Indication: Pneumonia bacterial
  5. BEDAQUILINE [Concomitant]
     Active Substance: BEDAQUILINE
     Indication: Mycobacterium abscessus infection
     Dosage: 8 MG/KG OF BODY WEIGHT DAILY FOR 2 WEEKS THEN 4 MG/KG OF BODY WEIGHT THRICE WEEKLY
     Route: 048
     Dates: start: 2022
  6. BEDAQUILINE [Concomitant]
     Active Substance: BEDAQUILINE
     Indication: Pneumonia bacterial
  7. CLARITHROMYCIN [Concomitant]
     Active Substance: CLARITHROMYCIN
     Indication: Mycobacterium abscessus infection
     Dosage: 7.5 MG/KG OF BODY WEIGHT/DAY
     Route: 048
     Dates: start: 2022
  8. CLARITHROMYCIN [Concomitant]
     Active Substance: CLARITHROMYCIN
     Indication: Pneumonia bacterial

REACTIONS (2)
  - Drug interaction [Unknown]
  - Product use in unapproved indication [Unknown]

NARRATIVE: CASE EVENT DATE: 20221101
